FAERS Safety Report 8009417-X (Version None)
Quarter: 2011Q4

REPORT INFORMATION
  Report Type: 
  Country: None (occurrence: None)
  Receive Date: 20111227
  Receipt Date: 20111219
  Transmission Date: 20120403
  Serious: Yes (Other)
  Sender: FDA-Public Use
  Company Number: JP-ROCHE-1023773

PATIENT

DRUGS (2)
  1. COPEGUS [Suspect]
     Indication: HEPATITIS C
  2. PEGINTERFERON ALFA-2B [Suspect]
     Indication: HEPATITIS C

REACTIONS (2)
  - HEPATIC NEOPLASM MALIGNANT [None]
  - PANCYTOPENIA [None]
